FAERS Safety Report 16360935 (Version 5)
Quarter: 2023Q4

REPORT INFORMATION
  Report Type: Other
  Country: CA (occurrence: CA)
  Receive Date: 20190528
  Receipt Date: 20231226
  Transmission Date: 20240110
  Serious: Yes (Hospitalization, Other)
  Sender: FDA-Public Use
  Company Number: CA-002147023-PHHY2017CA129938

PATIENT
  Age: 41 Year
  Sex: Female

DRUGS (13)
  1. XOLAIR [Suspect]
     Active Substance: OMALIZUMAB
     Indication: Asthma
     Route: 058
     Dates: start: 20120725
  2. XOLAIR [Suspect]
     Active Substance: OMALIZUMAB
     Route: 058
     Dates: start: 20130619
  3. XOLAIR [Suspect]
     Active Substance: OMALIZUMAB
     Route: 058
     Dates: start: 20180305
  4. XOLAIR [Suspect]
     Active Substance: OMALIZUMAB
     Route: 058
     Dates: start: 20130619
  5. PREDNISONE [Suspect]
     Active Substance: PREDNISONE
     Indication: Product used for unknown indication
     Route: 048
  6. PREDNISONE [Suspect]
     Active Substance: PREDNISONE
     Route: 065
  7. PREDNISONE [Suspect]
     Active Substance: PREDNISONE
     Dosage: FOR 3 MONTHS POST HOSPITALIZATION
     Route: 065
  8. VENTOLIN [Concomitant]
     Active Substance: ALBUTEROL SULFATE
     Indication: Asthma
     Dosage: 2 DF, PRN
     Route: 055
     Dates: start: 1977
  9. VENTOLIN [Concomitant]
     Active Substance: ALBUTEROL SULFATE
     Dosage: QD (8 TIMES PER DAY)
     Route: 065
     Dates: start: 1977
  10. SYMBICORT [Concomitant]
     Active Substance: BUDESONIDE\FORMOTEROL FUMARATE DIHYDRATE
     Indication: Asthma
     Dosage: 2 DF, BID
     Route: 055
     Dates: start: 2007
  11. EPIPEN [Concomitant]
     Active Substance: EPINEPHRINE
     Indication: Urticaria
     Dosage: UNK
     Route: 065
  12. ERYTHROMYCIN [Concomitant]
     Active Substance: ERYTHROMYCIN
  13. TETRACYCLINE [Concomitant]
     Active Substance: TETRACYCLINE

REACTIONS (23)
  - Condition aggravated [Not Recovered/Not Resolved]
  - Asthma [Not Recovered/Not Resolved]
  - Dyspnoea [Unknown]
  - Chest pain [Unknown]
  - Anaphylactic reaction [Unknown]
  - Malaise [Unknown]
  - Insomnia [Unknown]
  - Nasopharyngitis [Unknown]
  - Hypersensitivity [Unknown]
  - Weight increased [Unknown]
  - Weight decreased [Unknown]
  - Wheezing [Not Recovered/Not Resolved]
  - Chest discomfort [Not Recovered/Not Resolved]
  - Drug hypersensitivity [Unknown]
  - Sensitivity to weather change [Not Recovered/Not Resolved]
  - Mite allergy [Unknown]
  - Obstructive airways disorder [Unknown]
  - Paranasal cyst [Unknown]
  - Seasonal allergy [Unknown]
  - Illness [Unknown]
  - Dyspnoea exertional [Not Recovered/Not Resolved]
  - Cough [Not Recovered/Not Resolved]
  - Mycotic allergy [Unknown]

NARRATIVE: CASE EVENT DATE: 20130101
